FAERS Safety Report 22092547 (Version 1)
Quarter: 2023Q1

REPORT INFORMATION
  Report Type: Spontaneous
  Country: ES (occurrence: ES)
  Receive Date: 20230314
  Receipt Date: 20230314
  Transmission Date: 20230418
  Serious: Yes (Other)
  Sender: FDA-Public Use
  Company Number: None

PATIENT
  Age: 75 Year
  Sex: Male
  Weight: 70 kg

DRUGS (1)
  1. OXALIPLATIN [Suspect]
     Active Substance: OXALIPLATIN
     Indication: Colon cancer
     Dosage: STRENGTH: 5 MG/ML, 130MG/M2 EVERY 3 WEEKS AT 80% DUE TO SUSPICION OF GRADE 1 NEUROPATHY IN FEET
     Dates: start: 20230105, end: 20230105

REACTIONS (3)
  - Pain [Recovered/Resolved]
  - Flushing [Recovered/Resolved]
  - Hypoxia [Recovered/Resolved]

NARRATIVE: CASE EVENT DATE: 20230105
